FAERS Safety Report 10970551 (Version 1)
Quarter: 2015Q1

REPORT INFORMATION
  Report Type: Spontaneous
  Country: US (occurrence: None)
  Receive Date: 20150330
  Receipt Date: 20150330
  Transmission Date: 20150721
  Serious: Yes (Other)
  Sender: FDA-Public Use
  Company Number: None

PATIENT
  Age: 26 Year
  Sex: Female
  Weight: 118 kg

DRUGS (3)
  1. METHERGINE [Concomitant]
     Active Substance: METHYLERGONOVINE MALEATE
  2. OXYTOCIN. [Suspect]
     Active Substance: OXYTOCIN
     Indication: POSTPARTUM DISORDER
     Route: 042
     Dates: start: 20150314, end: 20150327
  3. CYTOTEC [Concomitant]
     Active Substance: MISOPROSTOL

REACTIONS (2)
  - Haemorrhage [None]
  - Drug ineffective [None]

NARRATIVE: CASE EVENT DATE: 20150313
